FAERS Safety Report 18765767 (Version 1)
Quarter: 2021Q1

REPORT INFORMATION
  Report Type: Other
  Country: CA (occurrence: CA)
  Receive Date: 20210121
  Receipt Date: 20210121
  Transmission Date: 20210419
  Serious: Yes (Hospitalization, Other)
  Sender: FDA-Public Use
  Company Number: CA-CELLTRION INC.-2021CA000363

PATIENT

DRUGS (20)
  1. MAGNESIUM GLYCINATE [Concomitant]
     Active Substance: MAGNESIUM GLYCINATE
  2. HYDROMORPHONE [Concomitant]
     Active Substance: HYDROMORPHONE
  3. IMOVANE [Concomitant]
     Active Substance: ZOPICLONE
  4. KRILL OIL [Concomitant]
     Active Substance: DIETARY SUPPLEMENT\KRILL OIL
  5. SULFASALAZINE. [Suspect]
     Active Substance: SULFASALAZINE
     Indication: PRODUCT USED FOR UNKNOWN INDICATION
     Dosage: 1000 MG, 2 EVERY 1 DAYS
     Route: 048
  6. RITUXIMAB (UNKNOWN) [Suspect]
     Active Substance: RITUXIMAB
     Indication: RHEUMATOID ARTHRITIS
     Dosage: 1000 MG, CYCLIC
     Route: 042
  7. CYMBALTA [Concomitant]
     Active Substance: DULOXETINE HYDROCHLORIDE
  8. LEVOTHYROXINE SODIUM. [Concomitant]
     Active Substance: LEVOTHYROXINE SODIUM
  9. DIPHENHYDRAMINE. [Concomitant]
     Active Substance: DIPHENHYDRAMINE
     Indication: PREMEDICATION
     Dosage: 50 MG
     Route: 048
  10. HYDROXYCHLOROQUINE SULFATE. [Concomitant]
     Active Substance: HYDROXYCHLOROQUINE SULFATE
  11. METHYLPREDNISOLONE. [Concomitant]
     Active Substance: METHYLPREDNISOLONE
     Indication: PREMEDICATION
     Dosage: 100 MG
     Route: 042
  12. RISEDRONATE SODIUM. [Concomitant]
     Active Substance: RISEDRONATE SODIUM
  13. ARAVA [Concomitant]
     Active Substance: LEFLUNOMIDE
  14. TOFACITINIB CITRATE [Suspect]
     Active Substance: TOFACITINIB CITRATE
     Indication: PRODUCT USED FOR UNKNOWN INDICATION
     Dosage: UNK
     Route: 065
  15. ACETAMINOPHEN. [Concomitant]
     Active Substance: ACETAMINOPHEN
     Indication: PREMEDICATION
     Dosage: 1000 MG
     Route: 048
  16. PREMARIN [Concomitant]
     Active Substance: ESTROGENS, CONJUGATED
  17. METHOTREXATE. [Suspect]
     Active Substance: METHOTREXATE
     Indication: PRODUCT USED FOR UNKNOWN INDICATION
     Dosage: 20 MG, 1 EVERY 1 WEEK
     Route: 058
  18. DICLOFENAC [Concomitant]
     Active Substance: DICLOFENAC
  19. LEFLUNOMIDE. [Concomitant]
     Active Substance: LEFLUNOMIDE
  20. PREDNISONE. [Concomitant]
     Active Substance: PREDNISONE

REACTIONS (28)
  - Dental caries [Not Recovered/Not Resolved]
  - Thrombocytopenia [Not Recovered/Not Resolved]
  - Transaminases increased [Not Recovered/Not Resolved]
  - Gastric disorder [Not Recovered/Not Resolved]
  - Pain [Not Recovered/Not Resolved]
  - Intentional product use issue [Not Recovered/Not Resolved]
  - Blood count abnormal [Not Recovered/Not Resolved]
  - Dry mouth [Not Recovered/Not Resolved]
  - Impaired healing [Not Recovered/Not Resolved]
  - Drug ineffective [Not Recovered/Not Resolved]
  - Bone fragmentation [Not Recovered/Not Resolved]
  - Hypertonic bladder [Not Recovered/Not Resolved]
  - Rheumatoid arthritis [Not Recovered/Not Resolved]
  - Conjunctivitis [Not Recovered/Not Resolved]
  - Spinal disorder [Not Recovered/Not Resolved]
  - Osteoarthritis [Not Recovered/Not Resolved]
  - Arthritis [Not Recovered/Not Resolved]
  - Device breakage [Not Recovered/Not Resolved]
  - Pain in extremity [Not Recovered/Not Resolved]
  - Pelvic fracture [Not Recovered/Not Resolved]
  - Oral herpes [Not Recovered/Not Resolved]
  - Body temperature decreased [Not Recovered/Not Resolved]
  - Fall [Not Recovered/Not Resolved]
  - Ill-defined disorder [Not Recovered/Not Resolved]
  - Rib fracture [Not Recovered/Not Resolved]
  - Effusion [Not Recovered/Not Resolved]
  - Infusion related reaction [Not Recovered/Not Resolved]
  - Off label use [Not Recovered/Not Resolved]
